FAERS Safety Report 6555706-5 (Version None)
Quarter: 2010Q1

REPORT INFORMATION
  Report Type: 
  Country: None (occurrence: None)
  Receive Date: 20100128
  Receipt Date: 20100114
  Transmission Date: 20100710
  Serious: Yes (Death)
  Sender: FDA-Public Use
  Company Number: US-KINGPHARMUSA00001-K200501812

PATIENT
  Age: 21 Year
  Sex: Male

DRUGS (4)
  1. AVINZA [Suspect]
     Dosage: UNK
     Route: 048
     Dates: start: 20050701, end: 20050701
  2. ALCOHOL [Suspect]
  3. MARIJUANA [Suspect]
  4. OXYCODONE HCL AND ACETAMINOPHEN [Suspect]

REACTIONS (9)
  - ACCIDENTAL OVERDOSE [None]
  - BRAIN OEDEMA [None]
  - BRONCHOPNEUMONIA [None]
  - CYANOSIS [None]
  - DRUG DIVERSION [None]
  - DYSPNOEA [None]
  - POISONING [None]
  - PULSE ABSENT [None]
  - RESPIRATORY DEPRESSION [None]
